FAERS Safety Report 12913057 (Version 1)
Quarter: 2016Q4

REPORT INFORMATION
  Report Type: Report from Study
  Country: BR (occurrence: BR)
  Receive Date: 20161104
  Receipt Date: 20161104
  Transmission Date: 20170207
  Serious: Yes (Death, Hospitalization, Other)
  Sender: FDA-Public Use
  Company Number: PHHY2016BR151576

PATIENT
  Sex: Male

DRUGS (4)
  1. FORADIL [Suspect]
     Active Substance: FORMOTEROL FUMARATE
     Indication: LUNG DISORDER
  2. FORADIL [Suspect]
     Active Substance: FORMOTEROL FUMARATE
     Indication: DYSPNOEA
     Dosage: 2 OR 3 CAPSULES, QD
     Route: 055
  3. FORADIL [Suspect]
     Active Substance: FORMOTEROL FUMARATE
     Indication: CARDIAC DISORDER
  4. OXYGEN. [Concomitant]
     Active Substance: OXYGEN
     Indication: PRODUCT USED FOR UNKNOWN INDICATION
     Route: 065

REACTIONS (5)
  - Lung disorder [Fatal]
  - Cardiac disorder [Fatal]
  - Dyspnoea [Unknown]
  - Product use issue [Unknown]
  - Weight decreased [Unknown]
